FAERS Safety Report 5078353-3 (Version None)
Quarter: 2006Q3

REPORT INFORMATION
  Report Type: 
  Country: None (occurrence: None)
  Receive Date: 20060811
  Receipt Date: 20060804
  Transmission Date: 20061208
  Serious: Yes (Hospitalization)
  Sender: FDA-Public Use
  Company Number: US-GLAXOSMITHKLINE-A0615300A

PATIENT
  Age: 54 Year
  Sex: Female

DRUGS (6)
  1. ADVAIR DISKUS 100/50 [Suspect]
     Indication: ASTHMA
     Dosage: 1PUFF TWICE PER DAY
     Route: 055
     Dates: start: 20030101
  2. DILANTIN [Concomitant]
  3. LAMICTAL [Concomitant]
  4. VALIUM [Concomitant]
  5. VICODIN [Concomitant]
  6. FOLIC ACID [Concomitant]

REACTIONS (5)
  - CEREBROVASCULAR ACCIDENT [None]
  - HEADACHE [None]
  - NAUSEA [None]
  - OVERDOSE [None]
  - PHARMACEUTICAL PRODUCT COMPLAINT [None]
